FAERS Safety Report 14224015 (Version 1)
Quarter: 2017Q4

REPORT INFORMATION
  Report Type: Spontaneous
  Country: US (occurrence: US)
  Receive Date: 20171122
  Receipt Date: 20171122
  Transmission Date: 20180321
  Serious: Yes (Life-Threatening)
  Sender: FDA-Public Use
  Company Number: None

PATIENT
  Sex: Male
  Weight: 72.9 kg

DRUGS (2)
  1. MORPHINE [Suspect]
     Active Substance: MORPHINE
     Indication: PAIN MANAGEMENT
     Dosage: ?          OTHER FREQUENCY:CONTINUALLY;?
     Route: 042
     Dates: start: 20171120, end: 20171121
  2. BACLOFEN ITB PUMP (MEDTRONIC) [Concomitant]

REACTIONS (2)
  - Oxygen saturation decreased [None]
  - Multi-organ disorder [None]

NARRATIVE: CASE EVENT DATE: 20171121
